FAERS Safety Report 13873173 (Version 2)
Quarter: 2017Q4

REPORT INFORMATION
  Report Type: Report from Study
  Country: BR (occurrence: BR)
  Receive Date: 20170816
  Receipt Date: 20171208
  Transmission Date: 20180320
  Serious: Yes (Hospitalization, Other)
  Sender: FDA-Public Use
  Company Number: PHHY2017BR119162

PATIENT
  Sex: Female

DRUGS (2)
  1. EXELON PATCH [Suspect]
     Active Substance: RIVASTIGMINE
     Indication: DEMENTIA ALZHEIMER^S TYPE
     Dosage: 1 DF, QD
     Route: 062
  2. EXELON PATCH [Suspect]
     Active Substance: RIVASTIGMINE
     Dosage: 9.5 MG, QD PATCH 10 (CM2)
     Route: 062

REACTIONS (13)
  - Malignant melanoma [Unknown]
  - Dementia Alzheimer^s type [Not Recovered/Not Resolved]
  - Feeling abnormal [Unknown]
  - Confusional state [Unknown]
  - Asthenia [Unknown]
  - Anxiety [Unknown]
  - Metastasis [Unknown]
  - Abnormal behaviour [Unknown]
  - Wrong technique in product usage process [Unknown]
  - Weight decreased [Not Recovered/Not Resolved]
  - Abdominal discomfort [Unknown]
  - Eating disorder [Not Recovered/Not Resolved]
  - Psychiatric symptom [Unknown]
